FAERS Safety Report 13935576 (Version 1)
Quarter: 2017Q3

REPORT INFORMATION
  Report Type: Spontaneous
  Country: BR (occurrence: BR)
  Receive Date: 20170905
  Receipt Date: 20170905
  Transmission Date: 20171127
  Serious: Yes (Hospitalization, Other)
  Sender: FDA-Public Use
  Company Number: BR-TEVA-801707ROM

PATIENT
  Age: 42 Year
  Sex: Female
  Weight: 65.5 kg

DRUGS (10)
  1. PRE-CHEMOTHERAPY (NOT SPECIFIED) [Concomitant]
     Indication: CHEMOTHERAPY
  2. FAULDLEUCO [Concomitant]
     Active Substance: LEUCOVORIN CALCIUM
     Indication: ADENOCARCINOMA OF COLON
  3. PANTOPRAZOLE [Concomitant]
     Active Substance: PANTOPRAZOLE
  4. CODEINE [Concomitant]
     Active Substance: CODEINE
  5. TEVAOXALI [Suspect]
     Active Substance: OXALIPLATIN
     Indication: ADENOCARCINOMA OF COLON
     Route: 042
     Dates: start: 20150211, end: 20170822
  6. AVASTIN [Concomitant]
     Active Substance: BEVACIZUMAB
     Indication: ADENOCARCINOMA OF COLON
  7. DIFENIDRIN [Concomitant]
     Active Substance: DIPHENHYDRAMINE
     Indication: ADVERSE DRUG REACTION
  8. EUTHYROX [Concomitant]
     Active Substance: LEVOTHYROXINE SODIUM
  9. BUSCOPAN [Concomitant]
     Active Substance: BUTYLSCOPOLAMINE BROMIDE
  10. LYRICA [Concomitant]
     Active Substance: PREGABALIN

REACTIONS (6)
  - Chills [Recovered/Resolved]
  - Blood pressure abnormal [Recovered/Resolved]
  - Tachycardia [Recovered/Resolved]
  - Tremor [Recovered/Resolved]
  - Dyspnoea [Recovered/Resolved]
  - Chest pain [Recovered/Resolved]

NARRATIVE: CASE EVENT DATE: 20170822
